FAERS Safety Report 10471073 (Version 4)
Quarter: 2015Q2

REPORT INFORMATION
  Report Type: Report from Study
  Country: US (occurrence: US)
  Receive Date: 20140923
  Receipt Date: 20150605
  Transmission Date: 20150821
  Serious: Yes (Hospitalization, Other)
  Sender: FDA-Public Use
  Company Number: PHEH2014US018158

PATIENT
  Age: 52 Year
  Sex: Male
  Weight: 56.3 kg

DRUGS (19)
  1. PROZAC [Concomitant]
     Active Substance: FLUOXETINE HYDROCHLORIDE
     Indication: PRODUCT USED FOR UNKNOWN INDICATION
     Dosage: 20 MG, QD
     Route: 048
  2. CALCIUM [Concomitant]
     Active Substance: CALCIUM
     Indication: PRODUCT USED FOR UNKNOWN INDICATION
     Route: 065
  3. ZENPEP [Concomitant]
     Active Substance: PANCRELIPASE\PANCRELIPASE AMYLASE\PANCRELIPASE LIPASE\PANCRELIPASE PROTEASE
     Indication: CYSTIC FIBROSIS
     Dosage: 20000 U, UNK
     Route: 048
  4. VITAMIN D3 [Concomitant]
     Active Substance: CHOLECALCIFEROL
     Indication: PRODUCT USED FOR UNKNOWN INDICATION
     Dosage: 50000 U, QW
     Route: 048
  5. AQUADEKS                           /07679501/ [Concomitant]
     Indication: PRODUCT USED FOR UNKNOWN INDICATION
     Route: 065
  6. PULMOZYME [Suspect]
     Active Substance: DORNASE ALFA
     Indication: CYSTIC FIBROSIS
     Dosage: 1 MG/ML, QD
     Route: 055
  7. BACTROBAN [Concomitant]
     Active Substance: MUPIROCIN\MUPIROCIN CALCIUM
     Indication: PRODUCT USED FOR UNKNOWN INDICATION
     Route: 065
  8. OMEGA 3 [Concomitant]
     Active Substance: OMEGA-3 FATTY ACIDS
     Indication: PRODUCT USED FOR UNKNOWN INDICATION
     Route: 065
  9. ALBUTEROL. [Suspect]
     Active Substance: ALBUTEROL
     Indication: CYSTIC FIBROSIS
     Dosage: 0.083% (2.5MG/3ML)
     Route: 055
  10. AZITHROMYCIN [Suspect]
     Active Substance: AZITHROMYCIN ANHYDROUS
     Indication: CYSTIC FIBROSIS
     Dosage: 500 MG, QM-F-W
     Route: 048
  11. TRAZODONE [Suspect]
     Active Substance: TRAZODONE HYDROCHLORIDE
     Indication: PRODUCT USED FOR UNKNOWN INDICATION
     Dosage: UNK
     Route: 048
  12. CAYSTON [Suspect]
     Active Substance: AZTREONAM
     Indication: CYSTIC FIBROSIS
     Dosage: 28 DAYS ON/ OFF
     Route: 055
  13. DULERA [Concomitant]
     Active Substance: FORMOTEROL FUMARATE DIHYDRATE\MOMETASONE FUROATE
     Indication: CYSTIC FIBROSIS
     Dosage: 2 DF, BID
     Route: 055
  14. TOBI PODHALER [Suspect]
     Active Substance: TOBRAMYCIN
     Indication: PNEUMONIA PSEUDOMONAL
     Dosage: 4 DF, BID
     Route: 055
     Dates: start: 20140801, end: 20140830
  15. NYSTATIN. [Concomitant]
     Active Substance: NYSTATIN
     Indication: PRODUCT USED FOR UNKNOWN INDICATION
     Route: 065
  16. RISPERDAL [Concomitant]
     Active Substance: RISPERIDONE
     Indication: PRODUCT USED FOR UNKNOWN INDICATION
     Dosage: 3 MG, TAKE TABLET AT BEDTIME (HS)
     Route: 048
  17. TOBI PODHALER [Suspect]
     Active Substance: TOBRAMYCIN
     Indication: CYSTIC FIBROSIS
     Dosage: 112 MG, TWICE A DAY
     Route: 055
     Dates: start: 2013
  18. FLUOXETINE [Concomitant]
     Active Substance: FLUOXETINE\FLUOXETINE HYDROCHLORIDE
     Indication: PRODUCT USED FOR UNKNOWN INDICATION
     Route: 065
  19. HYPERSOL B [Concomitant]
     Indication: CYSTIC FIBROSIS
     Dosage: UNK UNK, BID
     Route: 055

REACTIONS (15)
  - Cough [Recovered/Resolved]
  - Sputum discoloured [Unknown]
  - Obstructive airways disorder [Unknown]
  - Choking [Not Recovered/Not Resolved]
  - Fatigue [Unknown]
  - General physical health deterioration [Unknown]
  - Cystic fibrosis [Unknown]
  - Dyspnoea [Unknown]
  - Pulmonary congestion [Unknown]
  - Pseudomonas infection [Unknown]
  - Blood immunoglobulin E increased [Unknown]
  - Lung infection [Unknown]
  - Condition aggravated [Unknown]
  - Secretion discharge [Recovered/Resolved]
  - Pulmonary function test decreased [Recovering/Resolving]

NARRATIVE: CASE EVENT DATE: 2013
